FAERS Safety Report 14295858 (Version 5)
Quarter: 2018Q2

REPORT INFORMATION
  Report Type: Spontaneous
  Country: US (occurrence: US)
  Receive Date: 20171218
  Receipt Date: 20180606
  Transmission Date: 20180711
  Serious: Yes (Congenital Anomaly, Other)
  Sender: FDA-Public Use
  Company Number: PHEH2017US039855

PATIENT
  Sex: Female

DRUGS (1)
  1. ZOFRAN ODT [Suspect]
     Active Substance: ONDANSETRON HYDROCHLORIDE
     Indication: FOETAL EXPOSURE DURING PREGNANCY
     Dosage: MOTHER DOSE: 1 DF, TID
     Route: 064

REACTIONS (10)
  - Tonsillar hypertrophy [Unknown]
  - Eustachian tube dysfunction [Unknown]
  - Foot deformity [Unknown]
  - Adenoiditis [Unknown]
  - Foetal exposure during pregnancy [Unknown]
  - Conductive deafness [Unknown]
  - Congenital knee deformity [Unknown]
  - Ear infection [Unknown]
  - Overweight [Unknown]
  - Otitis media acute [Unknown]
